FAERS Safety Report 17874227 (Version 1)
Quarter: 2020Q2

REPORT INFORMATION
  Report Type: Spontaneous
  Country: US (occurrence: US)
  Receive Date: 20200609
  Receipt Date: 20200609
  Transmission Date: 20200714
  Serious: No
  Sender: FDA-Public Use
  Company Number: US-EMD SERONO-9167386

PATIENT
  Age: 50 Year
  Sex: Male

DRUGS (1)
  1. GLUCOPHAGE XR [Suspect]
     Active Substance: METFORMIN HYDROCHLORIDE
     Indication: PRODUCT USED FOR UNKNOWN INDICATION
     Route: 048
     Dates: end: 20200530

REACTIONS (2)
  - Feeling abnormal [Unknown]
  - Intentional dose omission [Unknown]

NARRATIVE: CASE EVENT DATE: 2020
